FAERS Safety Report 4807732-1 (Version None)
Quarter: 2005Q4

REPORT INFORMATION
  Report Type: 
  Country: None (occurrence: None)
  Receive Date: 20051019
  Receipt Date: 20051005
  Transmission Date: 20060501
  Serious: Yes (Hospitalization)
  Sender: FDA-Public Use
  Company Number: 215477

PATIENT
  Age: 56 Year
  Sex: Male

DRUGS (2)
  1. EFALIZUMAB (EFALIZUMAB) PWDR [Suspect]
     Indication: PSORIASIS
     Dosage: 1 MG/KG, 1/WEEK, SUBCUTANEOUS
     Route: 058
     Dates: start: 20050511, end: 20050615
  2. COAPROVEL (HYDROCHLOROTHIAZIDE, IRBESTARTAN) [Concomitant]

REACTIONS (6)
  - CHEILITIS [None]
  - CONDITION AGGRAVATED [None]
  - CONJUNCTIVITIS [None]
  - KERATITIS [None]
  - PHOTOSENSITIVITY REACTION [None]
  - PSORIASIS [None]
